FAERS Safety Report 15170394 (Version 1)
Quarter: 2018Q3

REPORT INFORMATION
  Report Type: Spontaneous
  Country: FR (occurrence: FR)
  Receive Date: 20180720
  Receipt Date: 20180720
  Transmission Date: 20181010
  Serious: Yes (Other)
  Sender: FDA-Public Use
  Company Number: FR-SA-2018SA194103

PATIENT
  Age: 26 Year
  Sex: Female
  Weight: 44 kg

DRUGS (1)
  1. MYOZYME [Suspect]
     Active Substance: ALGLUCOSIDASE ALFA
     Route: 041
     Dates: start: 20160121, end: 20180605

REACTIONS (4)
  - Rash erythematous [Recovered/Resolved]
  - Urticaria [Recovered/Resolved]
  - Respiratory disorder [Recovered/Resolved]
  - Urticaria [Recovered/Resolved]

NARRATIVE: CASE EVENT DATE: 20170926
